FAERS Safety Report 23467381 (Version 2)
Quarter: 2024Q1

REPORT INFORMATION
  Report Type: Spontaneous
  Country: US (occurrence: US)
  Receive Date: 20240201
  Receipt Date: 20240228
  Transmission Date: 20240410
  Serious: Yes (Death)
  Sender: FDA-Public Use
  Company Number: US-VERO BIOTECH-2024001015

PATIENT
  Age: 41 Year
  Sex: Male

DRUGS (1)
  1. GENOSYL [Suspect]
     Active Substance: NITRIC OXIDE

REACTIONS (2)
  - Oxygen saturation decreased [None]
  - Cardiac arrest [Fatal]
